FAERS Safety Report 14176619 (Version 1)
Quarter: 2017Q4

REPORT INFORMATION
  Report Type: Spontaneous
  Country: US (occurrence: US)
  Receive Date: 20171109
  Receipt Date: 20171109
  Transmission Date: 20180321
  Serious: Yes (Life-Threatening, Hospitalization)
  Sender: FDA-Public Use
  Company Number: None

PATIENT
  Age: 75 Year
  Sex: Female
  Weight: 55.8 kg

DRUGS (6)
  1. ELUQUIS [Concomitant]
  2. CARBOXYMETHYLCELLUOSE SODIUM [Concomitant]
  3. BISOPROLOL FUMARATE. [Suspect]
     Active Substance: BISOPROLOL FUMARATE
     Indication: THERAPEUTIC PROCEDURE
     Route: 048
     Dates: start: 20171101, end: 20171101
  4. VITAMIN D3 [Concomitant]
     Active Substance: CHOLECALCIFEROL
  5. REFRESH PM LUBRICANT EYE OINTMENT [Concomitant]
  6. FISH OIL [Concomitant]
     Active Substance: FISH OIL

REACTIONS (1)
  - Heart rate decreased [None]

NARRATIVE: CASE EVENT DATE: 20171101
